FAERS Safety Report 26055532 (Version 1)
Quarter: 2025Q4

REPORT INFORMATION
  Report Type: Spontaneous
  Country: CN (occurrence: CN)
  Receive Date: 20251117
  Receipt Date: 20251117
  Transmission Date: 20260118
  Serious: Yes (Other)
  Sender: JOHNSON AND JOHNSON
  Company Number: CN-JNJFOC-20251148876

PATIENT
  Sex: Male

DRUGS (1)
  1. ERLEADA [Suspect]
     Active Substance: APALUTAMIDE
     Indication: Prostate cancer
     Route: 048
     Dates: start: 202410, end: 2025

REACTIONS (6)
  - Adverse drug reaction [Unknown]
  - Hypersensitivity [Unknown]
  - Pain [Unknown]
  - Skin exfoliation [Unknown]
  - Pruritus [Unknown]
  - Rash erythematous [Unknown]
